FAERS Safety Report 18727052 (Version 1)
Quarter: 2021Q1

REPORT INFORMATION
  Report Type: Report from Study
  Country: DE (occurrence: DE)
  Receive Date: 20210111
  Receipt Date: 20210111
  Transmission Date: 20210419
  Serious: Yes (Hospitalization)
  Sender: FDA-Public Use
  Company Number: DE-TAKEDA-2015BAX001879

PATIENT
  Age: 45 Year
  Weight: 100 kg

DRUGS (23)
  1. LEPTILAN [Concomitant]
     Active Substance: VALPROATE SODIUM
     Indication: SEIZURE PROPHYLAXIS
     Dosage: 1 IN A.M., 1 AT NIGHT
     Route: 048
     Dates: start: 20021201
  2. ADVATE [Suspect]
     Active Substance: ANTIHEMOPHILIC FACTOR, HUMAN RECOMBINANT
     Indication: FACTOR VIII DEFICIENCY
     Dosage: 2000IU (INTERNATIONAL UNIT)3X A WEEK
     Route: 065
     Dates: start: 20040601, end: 20141125
  3. KALETRA [Concomitant]
     Active Substance: LOPINAVIR\RITONAVIR
     Indication: ANTIRETROVIRAL THERAPY
     Dosage: 100MG/25MG; 2 IN A.M., 2 AT NIGHT
     Route: 048
     Dates: start: 20010901
  4. IMODIUM [Concomitant]
     Active Substance: LOPERAMIDE HYDROCHLORIDE
     Indication: DIARRHOEA
     Dosage: 1X A DAY
     Route: 048
     Dates: start: 20060901
  5. TROSPIUM CHLORIDE. [Concomitant]
     Active Substance: TROSPIUM CHLORIDE
     Indication: INCONTINENCE
     Dosage: 20MILLIGRAM1X A DAY
     Route: 048
     Dates: start: 20140128
  6. KIVEXA [Concomitant]
     Active Substance: ABACAVIR SULFATE\LAMIVUDINE
     Indication: ANTIRETROVIRAL THERAPY
     Dosage: UNK UNK, QD
     Route: 048
     Dates: start: 20150401
  7. RIBAVARIN [Concomitant]
     Active Substance: RIBAVIRIN
     Indication: ANTIVIRAL TREATMENT
     Dosage: 400 MILLIGRAM, TID
     Route: 048
     Dates: start: 201510, end: 201601
  8. ADVATE [Suspect]
     Active Substance: ANTIHEMOPHILIC FACTOR, HUMAN RECOMBINANT
     Indication: PROPHYLAXIS
  9. VIMPAT [Concomitant]
     Active Substance: LACOSAMIDE
     Indication: ANTICONVULSANT DRUG LEVEL BELOW THERAPEUTIC
     Dosage: 200 MILLIGRAM, BID
     Route: 048
     Dates: start: 20150601
  10. ADVATE [Suspect]
     Active Substance: ANTIHEMOPHILIC FACTOR, HUMAN RECOMBINANT
     Indication: PROPHYLAXIS
  11. KEPPRA [Concomitant]
     Active Substance: LEVETIRACETAM
     Dosage: 1 AT NOON
     Route: 048
     Dates: start: 20021201
  12. ALTINSULIN [Concomitant]
     Indication: DIABETES MELLITUS
     Dosage: INTENSIVE INSULIN THERAPY DEPENDING ON ALIMENTATION
     Route: 058
     Dates: start: 20130401
  13. CYKLOKAPRON [Concomitant]
     Active Substance: TRANEXAMIC ACID
     Indication: HAEMORRHAGE PROPHYLAXIS
     Dosage: 500 MILLIGRAM, PRN
     Route: 048
  14. ADVATE [Suspect]
     Active Substance: ANTIHEMOPHILIC FACTOR, HUMAN RECOMBINANT
     Indication: PROPHYLAXIS
  15. COMBIVIR [Concomitant]
     Active Substance: LAMIVUDINE\ZIDOVUDINE
     Indication: ANTIRETROVIRAL THERAPY
     Dosage: 150MG/300MG; 1 IN A.M., 1 AT NIGHT
     Route: 048
     Dates: start: 20010901
  16. TEGRETAL [Concomitant]
     Active Substance: CARBAMAZEPINE
     Indication: SEIZURE PROPHYLAXIS
     Dosage: 1 IN A.M., 2 IN P.M.
     Route: 048
     Dates: start: 20010901
  17. ADVATE [Suspect]
     Active Substance: ANTIHEMOPHILIC FACTOR, HUMAN RECOMBINANT
     Indication: FACTOR VIII DEFICIENCY
     Dosage: 2000IU (INTERNATIONAL UNIT)3X A WEEK
     Route: 065
     Dates: start: 20040601, end: 20141125
  18. ADVATE [Suspect]
     Active Substance: ANTIHEMOPHILIC FACTOR, HUMAN RECOMBINANT
     Indication: FACTOR VIII DEFICIENCY
     Dosage: 2000IU (INTERNATIONAL UNIT)3X A WEEK
     Route: 065
     Dates: start: 20040601, end: 20141125
  19. HARVONI [Concomitant]
     Active Substance: LEDIPASVIR\SOFOSBUVIR
     Indication: ANTIVIRAL TREATMENT
     Dosage: UNK
     Route: 048
     Dates: start: 201510, end: 201601
  20. KEPPRA [Concomitant]
     Active Substance: LEVETIRACETAM
     Indication: SEIZURE PROPHYLAXIS
     Dosage: 1 IN A.M., 1 IN P.M.
     Route: 048
     Dates: start: 20021201
  21. RISPERDAL [Concomitant]
     Active Substance: RISPERIDONE
     Indication: AGGRESSION
     Dosage: 1MILLIGRAM1X A DAY
     Route: 048
     Dates: start: 20040601
  22. LANTUS [Concomitant]
     Active Substance: INSULIN GLARGINE
     Indication: DIABETES MELLITUS
     Dosage: 1X A DAY
     Route: 058
     Dates: start: 20130401
  23. TAZOBACT [Concomitant]
     Indication: URINARY TRACT INFECTION
     Dosage: UNK
     Route: 042
     Dates: start: 20140406, end: 20140411

REACTIONS (1)
  - Infected dermal cyst [Recovered/Resolved]

NARRATIVE: CASE EVENT DATE: 20141125
